FAERS Safety Report 9341398 (Version 3)
Quarter: 2014Q1

REPORT INFORMATION
  Report Type: Spontaneous
  Country: US (occurrence: US)
  Receive Date: 20130611
  Receipt Date: 20140206
  Transmission Date: 20141002
  Serious: Yes (Hospitalization)
  Sender: FDA-Public Use
  Company Number: US-BAYER-2013-067609

PATIENT
  Age: 21 Year
  Sex: Female
  Weight: 61.22 kg

DRUGS (4)
  1. MIRENA [Suspect]
     Indication: CONTRACEPTION
     Dosage: 20 MCG/24HR, CONT
     Route: 015
     Dates: start: 20110616, end: 20110621
  2. WELLBUTRIN SR [Concomitant]
     Dosage: 150 MG, TWICE DAILY)
     Dates: start: 20110616
  3. IBUPROFEN [Concomitant]
     Dosage: 4 PRN
     Dates: start: 20110620
  4. HYDROCODONE [Concomitant]
     Dosage: 1 PRN
     Dates: start: 20110619

REACTIONS (5)
  - Device dislocation [None]
  - Injury [None]
  - Pain [None]
  - Emotional distress [None]
  - Pelvic pain [None]
